FAERS Safety Report 19074976 (Version 1)
Quarter: 2021Q1

REPORT INFORMATION
  Report Type: Spontaneous
  Country: US (occurrence: US)
  Receive Date: 20210330
  Receipt Date: 20210330
  Transmission Date: 20210420
  Serious: No
  Sender: FDA-Public Use
  Company Number: US-ROCHE-2658440

PATIENT
  Sex: Female

DRUGS (12)
  1. ERIVEDGE [Suspect]
     Active Substance: VISMODEGIB
     Indication: SEBORRHOEIC KERATOSIS
  2. FLUOROURACIL. [Concomitant]
     Active Substance: FLUOROURACIL
     Dosage: 5 % TOPICAL CREAM 40 GRAMC
  3. ORTHO TRI CYCLEN [Concomitant]
     Active Substance: ETHINYL ESTRADIOL\NORGESTIMATE
     Dosage: (28) 0.18 MG (7)/ O.25 MG (7)/ 0.25 MG (7)?35 MCG TAB
  4. ZYCLARA [Concomitant]
     Active Substance: IMIQUIMOD
     Dosage: 3.75 TOPICAL CREAM
  5. ERIVEDGE [Suspect]
     Active Substance: VISMODEGIB
     Indication: SKIN CANCER
     Dosage: DATE OF LAST DOSE RECEIVED ON 11/SEP/2020
     Route: 048
     Dates: start: 20200717
  6. ERIVEDGE [Suspect]
     Active Substance: VISMODEGIB
     Indication: BASAL CELL CARCINOMA
     Route: 048
  7. ERIVEDGE [Suspect]
     Active Substance: VISMODEGIB
     Indication: NEOPLASM SKIN
  8. POTASSIUM CLAVULANATE [Concomitant]
     Active Substance: CLAVULANATE POTASSIUM
  9. FLONASE [Concomitant]
     Active Substance: FLUTICASONE PROPIONATE
     Dosage: 50 MCG
  10. AMOXICILLIN. [Concomitant]
     Active Substance: AMOXICILLIN
  11. MULTIVITAMINS [Concomitant]
     Active Substance: VITAMINS
  12. ERIVEDGE [Suspect]
     Active Substance: VISMODEGIB
     Indication: BASAL CELL CARCINOMA

REACTIONS (2)
  - Taste disorder [Unknown]
  - Fatigue [Unknown]
